FAERS Safety Report 20122777 (Version 1)
Quarter: 2021Q4

REPORT INFORMATION
  Report Type: Spontaneous
  Country: CN (occurrence: CN)
  Receive Date: 20211128
  Receipt Date: 20211128
  Transmission Date: 20220304
  Serious: Yes (Disabling)
  Sender: FDA-Public Use
  Company Number: CN-BAXTER-2021BAX037214

PATIENT
  Age: 53 Year
  Sex: Female
  Weight: 80 kg

DRUGS (10)
  1. CYCLOPHOSPHAMIDE [Suspect]
     Active Substance: CYCLOPHOSPHAMIDE
     Indication: Breast cancer female
     Dosage: 1-3 CYCLES OF CHEMOTHERAPY
     Route: 041
  2. CYCLOPHOSPHAMIDE [Suspect]
     Active Substance: CYCLOPHOSPHAMIDE
     Dosage: 4TH CYCLE; CYCLOPHOSPHAMIDE 1000 MG + 0.9% SODIUM CHLORIDE INJECTION 100ML, ST
     Route: 041
     Dates: start: 20211030, end: 20211030
  3. CYCLOPHOSPHAMIDE [Suspect]
     Active Substance: CYCLOPHOSPHAMIDE
     Dosage: DOSE REINTRODUCED; CYCLOPHOSPHAMIDE + 0.9% SODIUM CHLORIDE INJECTION
     Route: 041
  4. SODIUM CHLORIDE [Suspect]
     Active Substance: SODIUM CHLORIDE
     Indication: Medication dilution
     Dosage: CYCLOPHOSPHAMIDE 1000 MG + 0.9% SODIUM CHLORIDE INJECTION 100ML, IVGTT, ST
     Route: 041
     Dates: start: 20211030, end: 20211030
  5. SODIUM CHLORIDE [Suspect]
     Active Substance: SODIUM CHLORIDE
     Dosage: DOSE REINTRODUCED; CYCLOPHOSPHAMIDE + 0.9% SODIUM CHLORIDE INJECTION
     Route: 041
  6. DEXTROSE [Suspect]
     Active Substance: DEXTROSE
     Indication: Medication dilution
     Dosage: PIRARUBICIN 90 MG + 5% GLUCOSE INJECTION 100ML, ST
     Route: 041
     Dates: start: 20211030, end: 20211030
  7. DEXTROSE [Suspect]
     Active Substance: DEXTROSE
     Dosage: DOSE REINTRODUCED, PIRARUBICIN + 5% GLUCOSE INJECTION
     Route: 041
  8. PIRARUBICIN HYDROCHLORIDE [Suspect]
     Active Substance: PIRARUBICIN HYDROCHLORIDE
     Indication: Breast cancer female
     Dosage: 1-3 CYCLES
     Route: 041
  9. PIRARUBICIN HYDROCHLORIDE [Suspect]
     Active Substance: PIRARUBICIN HYDROCHLORIDE
     Dosage: 4TH CYCLE; PIRARUBICIN 90 MG + 5% GLUCOSE INJECTION 100ML, ST
     Route: 041
     Dates: start: 20211030, end: 20211030
  10. PIRARUBICIN HYDROCHLORIDE [Suspect]
     Active Substance: PIRARUBICIN HYDROCHLORIDE
     Dosage: DOSE REINTRODUCED; PIRARUBICIN + 5% GLUCOSE INJECTION
     Route: 041

REACTIONS (1)
  - Myelosuppression [Recovering/Resolving]

NARRATIVE: CASE EVENT DATE: 20211112
